FAERS Safety Report 10612311 (Version 2)
Quarter: 2015Q1

REPORT INFORMATION
  Report Type: Spontaneous
  Country: US (occurrence: US)
  Receive Date: 20141127
  Receipt Date: 20150206
  Transmission Date: 20150720
  Serious: No
  Sender: FDA-Public Use
  Company Number: US-009507513-1411USA009874

PATIENT
  Age: 35 Year
  Sex: Female
  Weight: 83.9 kg

DRUGS (2)
  1. NEXPLANON [Suspect]
     Active Substance: ETONOGESTREL
     Dosage: 1 ROD/ THREE YEARS
     Route: 059
     Dates: start: 20141002, end: 20141119
  2. NEXPLANON [Suspect]
     Active Substance: ETONOGESTREL
     Indication: UTERINE HAEMORRHAGE
     Dosage: 1 ROD/ THREE YEARS
     Route: 059
     Dates: start: 20141119

REACTIONS (4)
  - Implant site pain [Unknown]
  - Device breakage [Recovered/Resolved]
  - Implant site pain [Unknown]
  - Drug administration error [Unknown]

NARRATIVE: CASE EVENT DATE: 20141002
